FAERS Safety Report 17697361 (Version 3)
Quarter: 2020Q2

REPORT INFORMATION
  Report Type: Spontaneous
  Country: US (occurrence: US)
  Receive Date: 20200423
  Receipt Date: 20200514
  Transmission Date: 20200714
  Serious: Yes (Other)
  Sender: FDA-Public Use
  Company Number: US-ASTRAZENECA-2020SE52910

PATIENT
  Sex: Male
  Weight: 136.1 kg

DRUGS (10)
  1. BUPROPION. [Concomitant]
     Active Substance: BUPROPION
     Route: 048
  2. TRESIBA FLEXAPEN [Concomitant]
     Dosage: 80 UNITS DAILY
     Route: 058
  3. LISINOPRIL. [Concomitant]
     Active Substance: LISINOPRIL
     Route: 048
  4. BYDUREON [Suspect]
     Active Substance: EXENATIDE
     Dosage: 2 MG, EVERY 7 DAYS
     Route: 065
     Dates: start: 20190524
  5. JARDIANCE [Concomitant]
     Active Substance: EMPAGLIFLOZIN
     Route: 048
  6. NALTREXONE [Concomitant]
     Active Substance: NALTREXONE
  7. BUMETANIDE. [Concomitant]
     Active Substance: BUMETANIDE
     Route: 048
  8. METOPROLOL TARTRATE. [Concomitant]
     Active Substance: METOPROLOL TARTRATE
     Route: 048
  9. PROAIR INHALER [Concomitant]
     Active Substance: ALBUTEROL SULFATE
     Dosage: 2 PUFFS EVERY 6 HOURS AS NEEDED
     Route: 055
  10. TESTOSTERONE. [Concomitant]
     Active Substance: TESTOSTERONE
     Dosage: 200 MG 1 ML EVERY 14 DAYS
     Route: 030

REACTIONS (10)
  - Anaemia [Unknown]
  - Weight decreased [Unknown]
  - Product packaging quantity issue [Unknown]
  - Type 2 diabetes mellitus [Unknown]
  - Inflammation [Unknown]
  - Hypertension [Unknown]
  - Device issue [Unknown]
  - Obstructive airways disorder [Unknown]
  - Hyperlipidaemia [Unknown]
  - Incorrect dose administered by device [Unknown]
